FAERS Safety Report 16803897 (Version 1)
Quarter: 2019Q3

REPORT INFORMATION
  Report Type: Spontaneous
  Country: PL (occurrence: PL)
  Receive Date: 20190913
  Receipt Date: 20190913
  Transmission Date: 20191005
  Serious: Yes (Hospitalization)
  Sender: FDA-Public Use
  Company Number: PL-TEVA-2019-PL-1105952

PATIENT
  Age: 6 Year
  Sex: Female
  Weight: 19 kg

DRUGS (6)
  1. ACTAVEN [Suspect]
     Active Substance: ISOTRETINOIN
     Indication: NEUROBLASTOMA
     Dosage: 60 MILLIGRAM PER 12 HOURS
     Route: 048
     Dates: start: 20160608, end: 20160621
  2. HEVIRAN [Concomitant]
     Active Substance: ACYCLOVIR
     Indication: ANTIVIRAL PROPHYLAXIS
     Dosage: 200 MILLIGRAM PER 12 HOURS
     Route: 048
  3. ZYRTEC [Concomitant]
     Active Substance: CETIRIZINE HYDROCHLORIDE
     Indication: SUPPORTIVE CARE
     Dosage: 10 MILLIGRAM PER DAY
     Route: 048
  4. VORICONAZOLE. [Concomitant]
     Active Substance: VORICONAZOLE
     Indication: PULMONARY MYCOSIS
     Dosage: 200 MILLIGRAM PER 12 HOURS
     Route: 048
  5. VITAMIN B1 [Concomitant]
     Active Substance: THIAMINE HYDROCHLORIDE
     Indication: SUPPORTIVE CARE
     Dosage: 2 X 1 TABLET
     Route: 048
  6. BISEPTOL 240 [Concomitant]
     Indication: SUPPORTIVE CARE
     Dosage: 5 ML PER 12 HOURS
     Route: 048

REACTIONS (3)
  - Hyperkalaemia [Recovered/Resolved]
  - Skin lesion [Recovered/Resolved]
  - Capillary leak syndrome [Recovered/Resolved]

NARRATIVE: CASE EVENT DATE: 20160722
